FAERS Safety Report 10297857 (Version 2)
Quarter: 2014Q3

REPORT INFORMATION
  Report Type: Report from Study
  Country: CA (occurrence: CA)
  Receive Date: 20140711
  Receipt Date: 20140711
  Transmission Date: 20150326
  Serious: Yes (Other)
  Sender: FDA-Public Use
  Company Number: CA-ABBVIE-13P-028-1061971-00

PATIENT
  Sex: Female

DRUGS (2)
  1. HUMIRA [Suspect]
     Active Substance: ADALIMUMAB
     Indication: PSORIATIC ARTHROPATHY
     Route: 058
     Dates: start: 20121228, end: 201301
  2. HUMIRA [Suspect]
     Active Substance: ADALIMUMAB
     Dosage: RE-STARTED
     Dates: start: 20140703

REACTIONS (1)
  - Cardiac pacemaker insertion [Unknown]
